FAERS Safety Report 6088597-X (Version None)
Quarter: 2009Q1

REPORT INFORMATION
  Report Type: 
  Country: None (occurrence: None)
  Receive Date: 20090224
  Receipt Date: 20081202
  Transmission Date: 20090719
  Serious: Yes (Death, Hospitalization, Other)
  Sender: FDA-Public Use
  Company Number: VE-PFIZER INC-2008082920

PATIENT

DRUGS (2)
  1. AMLODIPINE BESILATE, ATORVASTATIN CALCIUM [Suspect]
     Indication: HYPERTENSION
     Dosage: 5 MG/10 MG
     Route: 048
     Dates: start: 20080731, end: 20080901
  2. AMLODIPINE BESILATE, ATORVASTATIN CALCIUM [Suspect]
     Indication: DYSLIPIDAEMIA

REACTIONS (6)
  - CHOLURIA [None]
  - JAUNDICE [None]
  - LOWER RESPIRATORY TRACT INFECTION [None]
  - PANCREATIC CARCINOMA [None]
  - RENAL FAILURE ACUTE [None]
  - SEPSIS [None]
